FAERS Safety Report 8310541-2 (Version None)
Quarter: 2012Q2

REPORT INFORMATION
  Report Type: 
  Country: None (occurrence: None)
  Receive Date: 20120425
  Receipt Date: 20110408
  Transmission Date: 20120825
  Serious: No
  Sender: FDA-Public Use
  Company Number: US-PFIZER INC-K201100421

PATIENT
  Age: 57 Year
  Sex: Male
  Weight: 129.25 kg

DRUGS (5)
  1. LISINOPRIL [Concomitant]
     Indication: HYPERTENSION
     Dosage: UNK
  2. LIPITOR [Concomitant]
     Indication: BLOOD CHOLESTEROL INCREASED
     Dosage: UNK
  3. AVINZA [Suspect]
     Indication: NEURALGIA
     Dosage: 90 MG, 1X/DAY
     Route: 048
     Dates: start: 20110301
  4. GLUCOTROL XL [Concomitant]
     Indication: DIABETES MELLITUS
     Dosage: UNK
  5. MORPHINE [Concomitant]
     Indication: NEURALGIA
     Dosage: 30 MG, 1X/DAY
     Route: 048

REACTIONS (1)
  - DRUG EFFECT DECREASED [None]
